FAERS Safety Report 20826904 (Version 1)
Quarter: 2022Q2

REPORT INFORMATION
  Report Type: Spontaneous
  Country: US (occurrence: None)
  Receive Date: 20220513
  Receipt Date: 20220513
  Transmission Date: 20220720
  Serious: Yes (Hospitalization)
  Sender: FDA-Public Use
  Company Number: None

PATIENT
  Sex: Male
  Weight: 130.8 kg

DRUGS (5)
  1. CYTARABINE [Suspect]
     Active Substance: CYTARABINE
  2. ETOPOSIDE [Concomitant]
     Active Substance: ETOPOSIDE
  3. METHOTREXATE [Concomitant]
  4. PEG-L-ASPARAGINASE (PEGASPARGASE, ONCOSPAR) [Concomitant]
  5. RITUXIMAB (MOAB C2B8 anti CD20, CHIMERIC [Concomitant]

REACTIONS (11)
  - Sepsis [None]
  - Febrile neutropenia [None]
  - Pancytopenia [None]
  - Hypotension [None]
  - Dysuria [None]
  - Chest pain [None]
  - Hyperglycaemia [None]
  - Metabolic acidosis [None]
  - Klebsiella test positive [None]
  - Proteus test positive [None]
  - Hepatic function abnormal [None]

NARRATIVE: CASE EVENT DATE: 20180620
